FAERS Safety Report 4382049-0 (Version None)
Quarter: 2004Q2

REPORT INFORMATION
  Report Type: 
  Country: None (occurrence: None)
  Receive Date: 20040621
  Receipt Date: 20040511
  Transmission Date: 20050107
  Serious: Yes (Disabling)
  Sender: FDA-Public Use
  Company Number: DE-MERCK-0405DEU00118

PATIENT
  Age: 63 Year
  Sex: Female
  Weight: 58 kg

DRUGS (8)
  1. ASPIRIN [Concomitant]
     Route: 048
     Dates: start: 19831201
  2. ATORVASTATIN CALCIUM [Concomitant]
     Route: 048
     Dates: start: 19980101, end: 20040312
  3. BISOPROLOL FUMARATE [Concomitant]
     Route: 048
     Dates: start: 20020101
  4. ZETIA [Suspect]
     Route: 048
     Dates: start: 20040115, end: 20040312
  5. HYDROCHLOROTHIAZIDE AND LOSARTAN POTASSIUM [Concomitant]
     Route: 048
     Dates: start: 19980101
  6. LEVOTHYROXINE SODIUM [Concomitant]
     Route: 048
     Dates: start: 19950101
  7. PANTOPRAZOLE SODIUM [Concomitant]
     Route: 048
     Dates: start: 20010101
  8. RALOXIFENE HYDROCHLORIDE [Concomitant]
     Route: 048
     Dates: start: 20000101

REACTIONS (4)
  - BLOOD CREATINE PHOSPHOKINASE INCREASED [None]
  - BLOOD CREATINE PHOSPHOKINASE MB INCREASED [None]
  - MYALGIA [None]
  - VITAL CAPACITY DECREASED [None]
